FAERS Safety Report 15143936 (Version 1)
Quarter: 2018Q3

REPORT INFORMATION
  Report Type: Spontaneous
  Country: US (occurrence: US)
  Receive Date: 20180713
  Receipt Date: 20180713
  Transmission Date: 20181010
  Serious: Yes (Hospitalization)
  Sender: FDA-Public Use
  Company Number: US-BAYER-2018-126823

PATIENT
  Age: 47 Year
  Sex: Female
  Weight: 88.45 kg

DRUGS (1)
  1. GADAVIST [Suspect]
     Active Substance: GADOBUTROL
     Indication: NUCLEAR MAGNETIC RESONANCE IMAGING
     Dosage: 10 ML, ONCE
     Route: 042
     Dates: start: 20180412, end: 20180412

REACTIONS (4)
  - Muscle tightness [None]
  - Dysphonia [None]
  - Dry throat [None]
  - Ear pruritus [None]

NARRATIVE: CASE EVENT DATE: 20180412
